FAERS Safety Report 8445383-0 (Version None)
Quarter: 2012Q2

REPORT INFORMATION
  Report Type: 
  Country: None (occurrence: None)
  Receive Date: 20120618
  Receipt Date: 20110720
  Transmission Date: 20120825
  Serious: No
  Sender: FDA-Public Use
  Company Number: US-TEVA-2011003834

PATIENT
  Sex: Female

DRUGS (3)
  1. METHADONE HCL [Concomitant]
  2. FENTORA [Suspect]
     Indication: BREAKTHROUGH PAIN
     Dosage: 2400 MICROGRAM;
     Route: 002
     Dates: start: 20110713
  3. GABITRIL [Concomitant]

REACTIONS (1)
  - HYPOTENSION [None]
